FAERS Safety Report 20862839 (Version 1)
Quarter: 2022Q2

REPORT INFORMATION
  Report Type: Spontaneous
  Country: US (occurrence: US)
  Receive Date: 20220523
  Receipt Date: 20220523
  Transmission Date: 20220720
  Serious: No
  Sender: FDA-Public Use
  Company Number: None

PATIENT
  Age: 75 Year
  Sex: Male

DRUGS (1)
  1. REVLIMID [Suspect]
     Active Substance: LENALIDOMIDE
     Indication: Product used for unknown indication
     Dosage: DOSE: 15 MILLIGRAM, FREQ: 15 MILLIGRAM 14 DAYS ON 7 DAYS OFF
     Route: 048
     Dates: start: 20220314

REACTIONS (2)
  - Product prescribing issue [Unknown]
  - Rash [Unknown]
